FAERS Safety Report 5954641-0 (Version None)
Quarter: 2008Q4

REPORT INFORMATION
  Report Type: 
  Country: None (occurrence: None)
  Receive Date: 20081117
  Receipt Date: 20081110
  Transmission Date: 20090506
  Serious: Yes (Other)
  Sender: FDA-Public Use
  Company Number: DE-JNJFOC-20081101838

PATIENT
  Age: 33 Year
  Sex: Female

DRUGS (12)
  1. RISPERDAL [Suspect]
     Route: 048
  2. RISPERDAL [Suspect]
     Route: 048
  3. RISPERDAL [Suspect]
     Route: 048
  4. RISPERDAL [Suspect]
     Route: 048
  5. RISPERDAL [Suspect]
     Indication: DRUG USE FOR UNKNOWN INDICATION
     Route: 048
  6. HALDOL [Suspect]
     Route: 048
  7. HALDOL [Suspect]
     Route: 048
  8. HALDOL [Suspect]
     Route: 048
  9. HALDOL [Suspect]
     Indication: DRUG USE FOR UNKNOWN INDICATION
     Route: 048
  10. LORAZEPAM [Concomitant]
     Route: 048
  11. ZOPICLON [Concomitant]
     Route: 048
  12. SALOFALK [Concomitant]
     Route: 048

REACTIONS (3)
  - BLOOD PROLACTIN INCREASED [None]
  - BREAST TENDERNESS [None]
  - GALACTORRHOEA [None]
